FAERS Safety Report 26125949 (Version 1)
Quarter: 2025Q4

REPORT INFORMATION
  Report Type: Spontaneous
  Country: EU (occurrence: EU)
  Receive Date: 20251205
  Receipt Date: 20251205
  Transmission Date: 20260117
  Serious: Yes (Hospitalization, Other)
  Sender: AMGEN
  Company Number: EU-ROCHE-10000440583

PATIENT
  Age: 59 Year
  Sex: Female

DRUGS (9)
  1. BEVACIZUMAB [Suspect]
     Active Substance: BEVACIZUMAB
     Indication: Colorectal adenocarcinoma
     Dosage: UNK
     Route: 065
     Dates: start: 202408, end: 202412
  2. FLUOROURACIL\IRINOTECAN\LEUCOVORIN [Suspect]
     Active Substance: FLUOROURACIL\IRINOTECAN\LEUCOVORIN
     Indication: Colorectal adenocarcinoma
     Dosage: UNK
     Route: 065
     Dates: start: 202408, end: 202412
  3. PEGFILGRASTIM [Concomitant]
     Active Substance: PEGFILGRASTIM
     Dosage: UNK
     Route: 065
  4. XELODA [Concomitant]
     Active Substance: CAPECITABINE
     Indication: Colorectal adenocarcinoma
     Dosage: UNK
     Route: 065
  5. XARELTO [Concomitant]
     Active Substance: RIVAROXABAN
     Indication: Product used for unknown indication
     Dosage: 20 MILLIGRAM, QD
     Route: 065
  6. Supportan [Concomitant]
     Indication: Weight decreased
     Dosage: UNK
     Route: 065
  7. Supportan [Concomitant]
     Indication: Sarcopenia
  8. Pronutrin [Concomitant]
     Indication: Weight decreased
     Dosage: UNK
     Route: 065
  9. Pronutrin [Concomitant]
     Indication: Sarcopenia

REACTIONS (9)
  - Postoperative abscess [Unknown]
  - Deep vein thrombosis [Unknown]
  - Pulmonary embolism [Unknown]
  - Disease progression [Unknown]
  - Urinary tract infection [Unknown]
  - Weight decreased [Unknown]
  - Sarcopenia [Unknown]
  - Lymphadenopathy [Unknown]
  - Renal cyst [Unknown]

NARRATIVE: CASE EVENT DATE: 20240901
